FAERS Safety Report 9464326 (Version 1)
Quarter: 2013Q3

REPORT INFORMATION
  Report Type: Spontaneous
  Country: US (occurrence: US)
  Receive Date: 20130819
  Receipt Date: 20130819
  Transmission Date: 20140515
  Serious: Yes (Hospitalization)
  Sender: FDA-Public Use
  Company Number: PHEH2013US017384

PATIENT
  Sex: Male

DRUGS (5)
  1. TRILEPTAL [Suspect]
     Dosage: 600 MG, BID
  2. KEPPRA [Concomitant]
     Indication: CONVULSION
     Dosage: UNK UKN, UNK
  3. IRON [Concomitant]
     Dosage: UNK UKN, UNK
  4. MULTI-VIT [Concomitant]
     Dosage: UNK UKN, UNK
  5. PERCOCET [Concomitant]
     Dosage: UNK UKN, UNK

REACTIONS (3)
  - Cervical vertebral fracture [Unknown]
  - Grand mal convulsion [Unknown]
  - Feeling abnormal [Unknown]
